FAERS Safety Report 21517472 (Version 1)
Quarter: 2022Q4

REPORT INFORMATION
  Report Type: Spontaneous
  Country: US (occurrence: None)
  Receive Date: 20221028
  Receipt Date: 20221028
  Transmission Date: 20230112
  Serious: Yes (Life-Threatening, Hospitalization, Other)
  Sender: FDA-Public Use
  Company Number: US-MLMSERVICE-20221010-3846707-1

PATIENT
  Age: 70 Year
  Sex: Female

DRUGS (1)
  1. OCTREOTIDE [Suspect]
     Active Substance: OCTREOTIDE
     Indication: Chylothorax
     Route: 042

REACTIONS (3)
  - Sinus bradycardia [Recovered/Resolved]
  - Atrioventricular block first degree [Recovered/Resolved]
  - Cardiac arrest [Recovered/Resolved]
